FAERS Safety Report 5862264-7 (Version None)
Quarter: 2008Q3

REPORT INFORMATION
  Report Type: 
  Country: None (occurrence: None)
  Receive Date: 20080828
  Receipt Date: 20080819
  Transmission Date: 20090109
  Serious: Yes (Hospitalization)
  Sender: FDA-Public Use
  Company Number: US-BAXTER-2007BH008413

PATIENT
  Age: 38 Year
  Sex: Male
  Weight: 77 kg

DRUGS (4)
  1. GAMMAGARD LIQUID [Suspect]
     Indication: DERMATOMYOSITIS
     Route: 042
     Dates: end: 20070101
  2. GAMMAGARD LIQUID [Suspect]
     Indication: OFF LABEL USE
     Route: 042
     Dates: end: 20070101
  3. GAMMAGARD LIQUID [Suspect]
     Route: 042
     Dates: end: 20070101
  4. GAMMAGARD LIQUID [Suspect]
     Route: 042
     Dates: end: 20070101

REACTIONS (1)
  - HAEMOLYSIS [None]
